FAERS Safety Report 15320143 (Version 1)
Quarter: 2018Q3

REPORT INFORMATION
  Report Type: Spontaneous
  Country: US (occurrence: US)
  Receive Date: 20180827
  Receipt Date: 20180827
  Transmission Date: 20181010
  Serious: No
  Sender: FDA-Public Use
  Company Number: US-PFIZER INC-2018343805

PATIENT
  Age: 67 Year
  Sex: Female
  Weight: 73 kg

DRUGS (2)
  1. ADVIL PM [Suspect]
     Active Substance: DIPHENHYDRAMINE CITRATE\IBUPROFEN
     Indication: INSOMNIA
     Dosage: 2 DF, 1X/DAY, AT NIGHT
     Route: 048
     Dates: start: 20180819, end: 20180820
  2. ADVIL PM [Suspect]
     Active Substance: DIPHENHYDRAMINE CITRATE\IBUPROFEN
     Indication: BACK PAIN

REACTIONS (4)
  - Retching [Recovered/Resolved]
  - Rash papular [Not Recovered/Not Resolved]
  - Drug hypersensitivity [Not Recovered/Not Resolved]
  - Rash vesicular [Not Recovered/Not Resolved]

NARRATIVE: CASE EVENT DATE: 20180821
